FAERS Safety Report 24270635 (Version 2)
Quarter: 2024Q4

REPORT INFORMATION
  Report Type: Report from Study
  Country: JP (occurrence: JP)
  Receive Date: 20240831
  Receipt Date: 20241119
  Transmission Date: 20250115
  Serious: Yes (Hospitalization)
  Sender: ABBVIE
  Company Number: JP-ABBVIE-5898196

PATIENT
  Age: 21 Year
  Sex: Male
  Weight: 52.8 kg

DRUGS (7)
  1. RISANKIZUMAB [Suspect]
     Active Substance: RISANKIZUMAB
     Indication: Crohn^s disease
     Route: 058
     Dates: start: 20240823
  2. RISANKIZUMAB [Suspect]
     Active Substance: RISANKIZUMAB
     Indication: Crohn^s disease
     Route: 042
     Dates: start: 20240527, end: 20240726
  3. ZINC ACETATE [Concomitant]
     Active Substance: ZINC ACETATE
     Indication: Crohn^s disease
     Dosage: ZINC ACETATE HYDRATE
     Route: 048
     Dates: start: 20240622
  4. FERROUS SULFATE [Concomitant]
     Active Substance: FERROUS SULFATE
     Indication: Crohn^s disease
     Dosage: 1 TABLET
     Route: 048
     Dates: start: 20240129
  5. FOLIC ACID [Concomitant]
     Active Substance: FOLIC ACID
     Indication: Crohn^s disease
     Dosage: 1 TABLET
     Route: 048
     Dates: start: 20240129
  6. CIPROFLOXACIN [Concomitant]
     Active Substance: CIPROFLOXACIN
     Indication: Crohn^s disease
     Route: 048
     Dates: start: 20231205
  7. FERINJECT [Concomitant]
     Active Substance: FERRIC CARBOXYMALTOSE
     Indication: Crohn^s disease
     Dosage: FREQUENCY ONCE
     Route: 042
     Dates: start: 20240823, end: 20240823

REACTIONS (1)
  - Intestinal stenosis [Recovered/Resolved]

NARRATIVE: CASE EVENT DATE: 20240823
